FAERS Safety Report 12706988 (Version 1)
Quarter: 2016Q3

REPORT INFORMATION
  Report Type: Report from Study
  Country: US (occurrence: US)
  Receive Date: 20160901
  Receipt Date: 20160901
  Transmission Date: 20161109
  Serious: Yes (Hospitalization)
  Sender: FDA-Public Use
  Company Number: PHEH2016US021816

PATIENT
  Sex: Female

DRUGS (3)
  1. SANDOSTATIN [Suspect]
     Active Substance: OCTREOTIDE ACETATE
     Indication: CARCINOID SYNDROME
     Dosage: 400 UG, QID
     Route: 058
  2. SANDOSTATIN LAR DEPOT [Suspect]
     Active Substance: OCTREOTIDE ACETATE
     Indication: PRODUCT USED FOR UNKNOWN INDICATION
     Dosage: 20 MG, UNK
     Route: 065
  3. SANDOSTATIN [Suspect]
     Active Substance: OCTREOTIDE ACETATE
     Dosage: 2200 UG, QD
     Route: 058

REACTIONS (10)
  - Dyspnoea [Unknown]
  - Tachycardia [Unknown]
  - Inappropriate schedule of drug administration [Unknown]
  - Chest pain [Unknown]
  - Adrenal insufficiency [Unknown]
  - Chest discomfort [Unknown]
  - Ear infection [Unknown]
  - Feeling abnormal [Unknown]
  - Palpitations [Unknown]
  - Syncope [Unknown]
